FAERS Safety Report 7488786-3 (Version None)
Quarter: 2011Q2

REPORT INFORMATION
  Report Type: 
  Country: None (occurrence: None)
  Receive Date: 20110518
  Receipt Date: 20110516
  Transmission Date: 20111010
  Serious: No
  Sender: FDA-Public Use
  Company Number: JP-PFIZER INC-2011098295

PATIENT
  Age: 40 Year
  Sex: Female
  Weight: 49 kg

DRUGS (10)
  1. VARENICLINE TARTRATE [Suspect]
     Dosage: 1 MG, 2X/DAY
     Dates: start: 20110504
  2. PEROSPIRONE HYDROCHLORIDE [Concomitant]
     Dosage: UNK
  3. VARENICLINE TARTRATE [Suspect]
     Dosage: 0.5 MG, 1X/DAY
     Route: 048
     Dates: start: 20110427, end: 20110429
  4. VARENICLINE TARTRATE [Suspect]
     Dosage: 0.5 MG, 2X/DAY
     Route: 048
     Dates: start: 20110430, end: 20110503
  5. LENDORMIN [Concomitant]
     Dosage: UNK
  6. MEILAX [Concomitant]
     Dosage: UNK
     Route: 048
  7. PAXIL [Concomitant]
     Dosage: UNK
  8. LIMAS [Concomitant]
     Dosage: 200 MG, 1X/DAY
  9. SERTRALINE HYDROCHLORIDE [Concomitant]
     Dosage: UNK
  10. TEGRETOL [Concomitant]
     Dosage: 200 MG, 1X/DAY
     Dates: start: 20110418

REACTIONS (1)
  - SWELLING [None]
